FAERS Safety Report 4314710-8 (Version None)
Quarter: 2004Q1

REPORT INFORMATION
  Report Type: 
  Country: None (occurrence: None)
  Receive Date: 20040310
  Receipt Date: 20040301
  Transmission Date: 20041129
  Serious: Yes (Other)
  Sender: FDA-Public Use
  Company Number: PHFR2004GB01267

PATIENT
  Age: 68 Year
  Sex: Male

DRUGS (15)
  1. TERBINAFINE HCL [Suspect]
     Dosage: 1 OM
     Route: 048
     Dates: start: 20040201, end: 20040213
  2. MADOPAR [Suspect]
     Indication: PARKINSON'S DISEASE
     Dosage: 62.5 1 QDS PRN
     Route: 048
     Dates: start: 20031028
  3. ROPINIROLE HYDROCHLORIDE [Suspect]
     Indication: PARKINSON'S DISEASE
     Dosage: 2 OT, QID
     Route: 048
     Dates: start: 20030513
  4. ROPINIROLE HYDROCHLORIDE [Suspect]
     Dosage: 1 OT, QID
     Dates: start: 20030805
  5. VARDENAFIL [Concomitant]
     Route: 065
     Dates: start: 20040129
  6. LACTULOSE [Concomitant]
     Dosage: 10 ML(2X5ML), BID
     Route: 065
  7. LIOTHYRONINE SODIUM [Concomitant]
     Dosage: 1 MANE
     Route: 065
     Dates: start: 20011127
  8. ENTACAPONE [Concomitant]
     Dosage: 1 OT, TID
     Route: 065
     Dates: start: 20011231
  9. THYROXINE [Concomitant]
     Dosage: 1 TO BE TAKEN IN THE MORNING
     Route: 065
  10. ZOPICLONE [Concomitant]
     Dosage: 2 NOCTE
     Route: 065
     Dates: start: 20030207
  11. DIAZEPAM [Concomitant]
     Dosage: 2 NOCTE
     Route: 065
     Dates: start: 20030805
  12. TYLEX [Concomitant]
     Dosage: 1-2 TDS
     Route: 065
     Dates: end: 20040102
  13. SINEMET [Concomitant]
     Route: 065
  14. SINEMET [Concomitant]
     Dosage: 1.5 MG, QID
     Dates: start: 20020213
  15. SINEMET CR [Concomitant]
     Dosage: 1 OR 2 NOCTE
     Dates: start: 20040210

REACTIONS (2)
  - HALLUCINATION, VISUAL [None]
  - VISUAL DISTURBANCE [None]
